FAERS Safety Report 8311854 (Version 4)
Quarter: 2012Q4

REPORT INFORMATION
  Report Type: 
  Country: AU (occurrence: AU)
  Receive Date: 20111227
  Receipt Date: 20121023
  Transmission Date: 20130627
  Serious: Yes (Hospitalization)
  Sender: FDA-Public Use
  Company Number: PHHY2011AU111751

PATIENT
  Age: 53 Year
  Sex: Female

DRUGS (4)
  1. GILENYA [Suspect]
     Indication: MULTIPLE SCLEROSIS
     Dosage: 0.5 mg, UNK
     Route: 048
     Dates: start: 20111215, end: 20111215
  2. MODURETIC [Concomitant]
  3. EFEXOR [Concomitant]
     Dosage: 75 mg, QD
  4. PREMARIN [Concomitant]
     Dosage: 0.625 mg, QD

REACTIONS (1)
  - Atrial fibrillation [Recovered/Resolved]
